FAERS Safety Report 4822964-4 (Version None)
Quarter: 2005Q4

REPORT INFORMATION
  Report Type: 
  Country: None (occurrence: None)
  Receive Date: 20051108
  Receipt Date: 20051029
  Transmission Date: 20060501
  Serious: Yes (Death)
  Sender: FDA-Public Use
  Company Number: US-AMGEN-US156166

PATIENT
  Sex: Male

DRUGS (8)
  1. NEUPOGEN [Suspect]
     Indication: NEUTROPENIA
     Dates: start: 20050829, end: 20050927
  2. ZOFRAN [Concomitant]
  3. PREDNISONE [Concomitant]
  4. TOPRAL [Concomitant]
  5. LOPRESSOR [Concomitant]
  6. DILANTIN [Concomitant]
  7. PHENERGAN [Concomitant]
  8. UNSPECIFIED PAIN MEDICATION [Concomitant]

REACTIONS (1)
  - DEATH [None]
